FAERS Safety Report 5951601-0 (Version None)
Quarter: 2008Q4

REPORT INFORMATION
  Report Type: 
  Country: None (occurrence: None)
  Receive Date: 20081113
  Receipt Date: 20081106
  Transmission Date: 20090506
  Serious: Yes (Disabling)
  Sender: FDA-Public Use
  Company Number: PHHY2008FR27432

PATIENT
  Age: 53 Year
  Sex: Male

DRUGS (2)
  1. GYNERGENE [Suspect]
     Indication: MIGRAINE
     Dosage: 4-8 TABLETS/MONTH
     Route: 048
  2. FENOFIBRATE [Concomitant]
     Dosage: UNK

REACTIONS (2)
  - ANDROGENETIC ALOPECIA [None]
  - ERECTILE DYSFUNCTION [None]
